FAERS Safety Report 12695818 (Version 2)
Quarter: 2016Q3

REPORT INFORMATION
  Report Type: Spontaneous
  Country: US (occurrence: US)
  Receive Date: 20160829
  Receipt Date: 20160908
  Transmission Date: 20161109
  Serious: Yes (Death)
  Sender: FDA-Public Use
  Company Number: US-PFIZER INC-2016400500

PATIENT
  Age: 79 Year
  Sex: Male
  Weight: 105 kg

DRUGS (18)
  1. GLYBURIDE. [Interacting]
     Active Substance: GLYBURIDE
     Dosage: 5 MG, 1X/DAY(EVERY MORNING)
  2. METOCLOPRAMIDE. [Concomitant]
     Active Substance: METOCLOPRAMIDE
     Dosage: 10 MG, 4X/DAY(EVERY 6 HOURS AS NEEDED)
  3. MIRTAZAPINE. [Concomitant]
     Active Substance: MIRTAZAPINE
     Dosage: 30 MG, 1X/DAY(EVERY EVENING)
  4. ATENOLOL. [Concomitant]
     Active Substance: ATENOLOL
     Dosage: 100 MG, 1X/DAY(EVERY EVENING)
  5. SIMVASTATIN. [Concomitant]
     Active Substance: SIMVASTATIN
     Dosage: 20 MG, 1X/DAY(EVERY EVENING)
  6. DOXAZOSIN [Concomitant]
     Active Substance: DOXAZOSIN\DOXAZOSIN MESYLATE
     Dosage: 1 MG, 1X/DAY(EVERY MORNING)
  7. LEVOFLOXACIN. [Suspect]
     Active Substance: LEVOFLOXACIN
     Indication: PNEUMONIA ASPIRATION
     Dosage: 250 MG, UNK
     Route: 042
  8. NITROGLYCERIN. [Concomitant]
     Active Substance: NITROGLYCERIN
     Dosage: 2 %, 4X/DAY (EVERY 6 HOURS)
     Route: 061
  9. ALLOPURINOL. [Concomitant]
     Active Substance: ALLOPURINOL
     Dosage: 200 MG, 1X/DAY(EVERY MORNING)
  10. PANTOPRAZOLE [Concomitant]
     Active Substance: PANTOPRAZOLE SODIUM
     Dosage: 40 MG, 2X/DAY
  11. CLOPIDOGREL [Concomitant]
     Active Substance: CLOPIDOGREL BISULFATE
     Dosage: 75 MG, 1X/DAY(EVERY EVENING)
  12. GLYBURIDE. [Interacting]
     Active Substance: GLYBURIDE
     Dosage: 5 MG, 1X/DAY
  13. LEVOTHYROXINE. [Concomitant]
     Active Substance: LEVOTHYROXINE
     Dosage: 200 UG, 1X/DAY( EVERY MORNING)
  14. DILTIAZEM CD [Concomitant]
     Active Substance: DILTIAZEM
     Dosage: 120 MG, 1X/DAY( EVERY MORNING )
  15. FLUCONAZOLE. [Interacting]
     Active Substance: FLUCONAZOLE
     Dosage: 100 MG, 1X/DAY(EVERY MORNING)
  16. ASPIRIN. [Interacting]
     Active Substance: ASPIRIN
     Dosage: 81 MG, 1X/DAY(EVERY EVENING)
  17. ESCITALOPRAM [Concomitant]
     Active Substance: ESCITALOPRAM OXALATE
     Dosage: 20 MG, 1X/DAY(EVERY EVENING)
  18. SODIUM BICARBONATE. [Concomitant]
     Active Substance: SODIUM BICARBONATE
     Dosage: 1300 MG, 3X/DAY

REACTIONS (2)
  - Drug interaction [Unknown]
  - Hypoglycaemia [Fatal]
